FAERS Safety Report 5867507-1 (Version None)
Quarter: 2008Q3

REPORT INFORMATION
  Report Type: 
  Country: None (occurrence: None)
  Receive Date: 20080902
  Receipt Date: 20070810
  Transmission Date: 20090109
  Serious: No
  Sender: FDA-Public Use
  Company Number: US-ABBOTT-07P-163-0377591-00

PATIENT
  Sex: Female
  Weight: 61.29 kg

DRUGS (5)
  1. DEPAKOTE ER [Suspect]
     Indication: ANXIETY
     Route: 048
     Dates: start: 20070201
  2. DEPAKOTE ER [Suspect]
     Indication: DEPRESSION
  3. ENTERCORT [Concomitant]
     Indication: DRUG USE FOR UNKNOWN INDICATION
  4. ESCITALOPRAM OXALATE [Concomitant]
     Indication: DRUG USE FOR UNKNOWN INDICATION
  5. LEVOTHYROXINE SODIUM [Concomitant]
     Indication: DRUG USE FOR UNKNOWN INDICATION

REACTIONS (1)
  - ALOPECIA [None]
